FAERS Safety Report 20335605 (Version 1)
Quarter: 2022Q1

REPORT INFORMATION
  Report Type: Spontaneous
  Country: CN (occurrence: CN)
  Receive Date: 20220114
  Receipt Date: 20220114
  Transmission Date: 20220423
  Serious: Yes (Other)
  Sender: FDA-Public Use
  Company Number: CN-PFIZER INC-202200028461

PATIENT
  Age: 25 Year
  Sex: Female
  Weight: 53.3 kg

DRUGS (1)
  1. METHOTREXATE [Suspect]
     Active Substance: METHOTREXATE
     Indication: Abortion induced
     Dosage: 50 MG, 1X/DAY
     Route: 030
     Dates: start: 20211221, end: 20211221

REACTIONS (5)
  - Hepatic function abnormal [Recovering/Resolving]
  - Blood bilirubin increased [Unknown]
  - Transaminases increased [Unknown]
  - Protein total decreased [Unknown]
  - Off label use [Unknown]

NARRATIVE: CASE EVENT DATE: 20211225
